FAERS Safety Report 6694541-4 (Version None)
Quarter: 2010Q2

REPORT INFORMATION
  Report Type: 
  Country: None (occurrence: None)
  Receive Date: 20100423
  Receipt Date: 20100420
  Transmission Date: 20101027
  Serious: Yes (Hospitalization)
  Sender: FDA-Public Use
  Company Number: GB-BRISTOL-MYERS SQUIBB COMPANY-15024136

PATIENT
  Age: 42 Year
  Sex: Female

DRUGS (7)
  1. DASATINIB [Suspect]
     Indication: CHRONIC MYELOID LEUKAEMIA TRANSFORMATION
     Dates: start: 20100111, end: 20100129
  2. FLUDARABINE [Suspect]
     Indication: CHRONIC MYELOID LEUKAEMIA TRANSFORMATION
  3. CYTARABINE [Suspect]
     Indication: CHRONIC MYELOID LEUKAEMIA TRANSFORMATION
  4. FILGRASTIM [Suspect]
  5. NEUPOGEN [Suspect]
     Indication: CHRONIC MYELOID LEUKAEMIA TRANSFORMATION
  6. IDARUBICIN HCL [Suspect]
     Indication: CHRONIC MYELOID LEUKAEMIA TRANSFORMATION
  7. IMATINIB MESILATE [Concomitant]

REACTIONS (3)
  - FEBRILE NEUTROPENIA [None]
  - PULMONARY MASS [None]
  - RASH [None]
